FAERS Safety Report 7679995-9 (Version None)
Quarter: 2011Q3

REPORT INFORMATION
  Report Type: 
  Country: None (occurrence: None)
  Receive Date: 20110812
  Receipt Date: 20110801
  Transmission Date: 20111222
  Serious: Yes (Hospitalization)
  Sender: FDA-Public Use
  Company Number: US-JNJFOC-20110102436

PATIENT
  Sex: Female
  Weight: 51.4 kg

DRUGS (3)
  1. PREVACID [Concomitant]
  2. HUMIRA [Concomitant]
  3. INFLIXIMAB, RECOMBINANT [Suspect]
     Indication: CROHN'S DISEASE
     Dosage: TOTAL 9 DOSES
     Route: 042
     Dates: start: 20040729, end: 20051104

REACTIONS (2)
  - CROHN'S DISEASE [None]
  - WOUND COMPLICATION [None]
